FAERS Safety Report 5725637-9 (Version None)
Quarter: 2008Q2

REPORT INFORMATION
  Report Type: 
  Country: None (occurrence: None)
  Receive Date: 20080501
  Receipt Date: 20080407
  Transmission Date: 20081010
  Serious: No
  Sender: FDA-Public Use
  Company Number: US-BOEHRINGER INGELHEIM GMBH, GERMANY-2008-BP-05382BP

PATIENT
  Sex: Female

DRUGS (5)
  1. COMBIVENT [Suspect]
     Indication: CHRONIC OBSTRUCTIVE PULMONARY DISEASE
     Route: 055
     Dates: start: 20010101
  2. NORVASC [Concomitant]
     Indication: HYPERTENSION
  3. COUMADIN [Concomitant]
     Indication: ATRIAL FIBRILLATION
  4. TENORMIN [Concomitant]
     Indication: HYPERTENSION
  5. ISOSORBIDE DINITRATE [Concomitant]

REACTIONS (4)
  - BURNING SENSATION [None]
  - DIZZINESS [None]
  - NAUSEA [None]
  - VISUAL DISTURBANCE [None]
